FAERS Safety Report 15918571 (Version 3)
Quarter: 2022Q2

REPORT INFORMATION
  Report Type: Report from Study
  Country: JP (occurrence: JP)
  Receive Date: 20190205
  Receipt Date: 20220421
  Transmission Date: 20220721
  Serious: Yes (Death, Other)
  Sender: FDA-Public Use
  Company Number: JP-MSD-M2019-02242

PATIENT
  Age: 55 Year
  Sex: Female
  Weight: 48 kg

DRUGS (10)
  1. LETERMOVIR [Suspect]
     Active Substance: LETERMOVIR
     Indication: Antiviral prophylaxis
     Dosage: 480 MILLIGRAM, QD
     Route: 048
     Dates: start: 20181004, end: 20181010
  2. PREVYMIS [Suspect]
     Active Substance: LETERMOVIR
     Indication: Antiviral prophylaxis
     Dosage: 480 MILLIGRAM, QD
     Route: 041
     Dates: start: 20181011, end: 20181019
  3. CANCIDAS [Suspect]
     Active Substance: CASPOFUNGIN ACETATE
     Indication: Febrile neutropenia
     Dosage: 50 MILLIGRAM, QD
     Route: 041
     Dates: start: 20181004, end: 20181023
  4. CEFEPIME HYDROCHLORIDE [Concomitant]
     Active Substance: CEFEPIME HYDROCHLORIDE
     Indication: Febrile neutropenia
     Dosage: 2 GRAM, BID
     Route: 041
     Dates: start: 20181007, end: 20181023
  5. LENOGRASTIM [Concomitant]
     Active Substance: LENOGRASTIM
     Indication: Neutrophil count decreased
     Dosage: 250 MICROGRAM, QD
     Route: 058
     Dates: start: 20181009, end: 20181024
  6. PROGRAF [Concomitant]
     Active Substance: TACROLIMUS
     Indication: Immunosuppression
     Dosage: 0.96 MICROGRAM, QD
     Route: 041
     Dates: start: 20181009, end: 20181024
  7. PROGRAF [Concomitant]
     Active Substance: TACROLIMUS
     Indication: Prophylaxis
     Dosage: 1.0MG-1.3MG, QD
     Route: 051
     Dates: start: 20181010
  8. CELLCEPT [Concomitant]
     Active Substance: MYCOPHENOLATE MOFETIL
     Indication: Prophylaxis
     Dosage: 750 MILLIGRAM, BID
     Route: 048
     Dates: start: 20181009, end: 20181019
  9. ACYCLOVIR [Concomitant]
     Active Substance: ACYCLOVIR
     Indication: Prophylaxis
     Dosage: 250MG-1000MG, 1-5 DOSES/DAY
     Route: 048
  10. SOLU-CORTEF [Concomitant]
     Active Substance: HYDROCORTISONE SODIUM SUCCINATE
     Indication: Prophylaxis
     Dosage: 200 MILLIGRAM, QD
     Route: 051
     Dates: start: 20181004, end: 20181004

REACTIONS (3)
  - Engraftment syndrome [Fatal]
  - Stenotrophomonas infection [Fatal]
  - Bacterial sepsis [Fatal]

NARRATIVE: CASE EVENT DATE: 20181012
